FAERS Safety Report 24718024 (Version 1)
Quarter: 2024Q4

REPORT INFORMATION
  Report Type: Spontaneous
  Country: US (occurrence: None)
  Receive Date: 20241209
  Receipt Date: 20241209
  Transmission Date: 20250114
  Serious: Yes (Life-Threatening, Disabling, Other)
  Sender: Public
  Company Number: None

PATIENT
  Age: 49 Year
  Sex: Male
  Weight: 155.25 kg

DRUGS (11)
  1. BACTRIM DS [Suspect]
     Active Substance: SULFAMETHOXAZOLE\TRIMETHOPRIM
     Indication: Periorbital cellulitis
     Dates: start: 20240930, end: 20241010
  2. AFRIN [Suspect]
     Active Substance: OXYMETAZOLINE
  3. ALBUTEROL [Suspect]
     Active Substance: ALBUTEROL
  4. ATARAX HCL [Concomitant]
  5. LISINOPRIL [Concomitant]
     Active Substance: LISINOPRIL
  6. TYLENOL/IBUPROFEN [Concomitant]
  7. HERBAL TINCTURES [Concomitant]
  8. HERBALS\MELISSA OFFICINALIS [Concomitant]
     Active Substance: HERBALS\MELISSA OFFICINALIS
  9. VALERIAN [Concomitant]
     Active Substance: VALERIAN
  10. GORILLA MIND CALM [Concomitant]
  11. MAGNESIUM [Concomitant]
     Active Substance: MAGNESIUM

REACTIONS (9)
  - Anxiety [None]
  - Near death experience [None]
  - Ear swelling [None]
  - Periorbital cellulitis [None]
  - Refusal of treatment by patient [None]
  - Feeling of despair [None]
  - Depression [None]
  - Educational problem [None]
  - Activities of daily living assessment [None]

NARRATIVE: CASE EVENT DATE: 20241003
